FAERS Safety Report 19417545 (Version 1)
Quarter: 2021Q2

REPORT INFORMATION
  Report Type: Spontaneous
  Country: JP (occurrence: JP)
  Receive Date: 20210615
  Receipt Date: 20210615
  Transmission Date: 20210717
  Serious: Yes (Hospitalization)
  Sender: FDA-Public Use
  Company Number: JP-PERRIGO-21JP007385

PATIENT
  Age: 14 Year
  Sex: Female

DRUGS (10)
  1. L?CARBOCYSTEINE [Concomitant]
     Active Substance: CARBOCYSTEINE
     Indication: PYREXIA
     Dosage: UNK
     Route: 065
  2. L?CARBOCYSTEINE [Concomitant]
     Active Substance: CARBOCYSTEINE
     Indication: NASOPHARYNGITIS
  3. TRANEXAMIC ACID. [Concomitant]
     Active Substance: TRANEXAMIC ACID
     Indication: NASOPHARYNGITIS
  4. CEFDINIR. [Suspect]
     Active Substance: CEFDINIR
     Indication: PYREXIA
     Dosage: UNK
     Route: 065
  5. ACETAMINOPHEN. [Suspect]
     Active Substance: ACETAMINOPHEN
     Indication: PYREXIA
     Dosage: UNK
     Route: 048
  6. LACTOMIN [Concomitant]
     Active Substance: DIETARY SUPPLEMENT\PROBIOTICS
     Indication: PYREXIA
     Dosage: UNK
     Route: 065
  7. CEFDINIR. [Suspect]
     Active Substance: CEFDINIR
     Indication: NASOPHARYNGITIS
  8. ACETAMINOPHEN. [Suspect]
     Active Substance: ACETAMINOPHEN
     Indication: NASOPHARYNGITIS
  9. TRANEXAMIC ACID. [Concomitant]
     Active Substance: TRANEXAMIC ACID
     Indication: PYREXIA
     Dosage: UNK
     Route: 065
  10. LACTOMIN [Concomitant]
     Active Substance: DIETARY SUPPLEMENT\PROBIOTICS
     Indication: NASOPHARYNGITIS

REACTIONS (3)
  - Stevens-Johnson syndrome [Recovered/Resolved]
  - Acute hepatic failure [Recovered/Resolved with Sequelae]
  - Hepatitis fulminant [Recovered/Resolved with Sequelae]
